FAERS Safety Report 5311532-6 (Version None)
Quarter: 2007Q2

REPORT INFORMATION
  Report Type: 
  Country: None (occurrence: None)
  Receive Date: 20070430
  Receipt Date: 20070405
  Transmission Date: 20071010
  Serious: Yes (Hospitalization)
  Sender: FDA-Public Use
  Company Number: FR-GLAXOSMITHKLINE-B0466401A

PATIENT
  Age: 47 Year
  Sex: Male
  Weight: 126 kg

DRUGS (5)
  1. AVANDAMET [Suspect]
     Dosage: 2TAB TWICE PER DAY
     Route: 048
     Dates: start: 20050201, end: 20050822
  2. ANGIOTENSIN-CONVERTING ENZYME INHIBITOR [Concomitant]
     Indication: HYPERTENSION
     Route: 048
  3. UNKNOWN MEDICATION [Concomitant]
     Route: 048
  4. BETA BLOCKER [Concomitant]
     Indication: HYPERTENSION
     Route: 048
  5. CALCIUM CHANNEL BLOCKERS [Concomitant]
     Indication: HYPERTENSION
     Route: 048

REACTIONS (1)
  - RESPIRATORY DISTRESS [None]
